FAERS Safety Report 10008744 (Version 1)
Quarter: 2014Q1

REPORT INFORMATION
  Report Type: Spontaneous
  Country: US (occurrence: US)
  Receive Date: 20140312
  Receipt Date: 20140312
  Transmission Date: 20141002
  Serious: No
  Sender: FDA-Public Use
  Company Number: US-INCYTE CORPORATION-2012IN000597

PATIENT
  Age: 40 Year
  Sex: Female

DRUGS (3)
  1. JAKAFI [Suspect]
     Indication: LEUKAEMIA
     Dosage: 15 MG, BID
     Route: 048
     Dates: start: 201201
  2. JAKAFI [Suspect]
     Dosage: 15 MG AM, 20 MG PM, BID
     Route: 048
     Dates: end: 20120409
  3. JAKAFI [Suspect]
     Dosage: 20 MG, BID
     Route: 048
     Dates: start: 20120410

REACTIONS (3)
  - Mood swings [Unknown]
  - White blood cell count increased [Unknown]
  - Headache [Not Recovered/Not Resolved]
